FAERS Safety Report 10592458 (Version 1)
Quarter: 2014Q4

REPORT INFORMATION
  Report Type: Spontaneous
  Country: JP (occurrence: JP)
  Receive Date: 20141119
  Receipt Date: 20141119
  Transmission Date: 20150529
  Serious: Yes (Hospitalization)
  Sender: FDA-Public Use
  Company Number: PHHY2014JP147569

PATIENT
  Sex: Female

DRUGS (2)
  1. AFINITOR [Suspect]
     Active Substance: EVEROLIMUS
     Indication: BREAST CANCER METASTATIC
     Dosage: 10 MG, DAILY
     Route: 048
     Dates: start: 20140825, end: 20141105
  2. AROMASIN [Concomitant]
     Active Substance: EXEMESTANE
     Indication: PRODUCT USED FOR UNKNOWN INDICATION
     Dosage: 25 MG, DAILY
     Route: 048
     Dates: start: 20140825, end: 20141105

REACTIONS (1)
  - Altered state of consciousness [Not Recovered/Not Resolved]

NARRATIVE: CASE EVENT DATE: 20141105
